FAERS Safety Report 5655181-9 (Version None)
Quarter: 2008Q1

REPORT INFORMATION
  Report Type: 
  Country: None (occurrence: None)
  Receive Date: 20080307
  Receipt Date: 20080225
  Transmission Date: 20080703
  Serious: Yes (Other)
  Sender: FDA-Public Use
  Company Number: GB-AMGEN-US267507

PATIENT
  Sex: Female

DRUGS (3)
  1. ENBREL [Suspect]
     Indication: DRUG USE FOR UNKNOWN INDICATION
     Dosage: UNKNOWN
  2. DICLOFENAC SODIUM [Concomitant]
     Dosage: UNKNOWN
  3. LANSOPRAZOLE [Concomitant]
     Dosage: UNKNOWN

REACTIONS (6)
  - ABDOMINAL DISCOMFORT [None]
  - DEFAECATION URGENCY [None]
  - ERUCTATION [None]
  - HAEMATOCHEZIA [None]
  - MEDICATION ERROR [None]
  - PLATELET COUNT DECREASED [None]
